FAERS Safety Report 25584603 (Version 2)
Quarter: 2025Q3

REPORT INFORMATION
  Report Type: Spontaneous
  Country: US (occurrence: US)
  Receive Date: 20250721
  Receipt Date: 20250805
  Transmission Date: 20251020
  Serious: Yes (Life-Threatening, Hospitalization)
  Sender: TEVA
  Company Number: US-TEVA-VS-3352192

PATIENT
  Age: 12 Month
  Sex: Female

DRUGS (1)
  1. FENTANYL [Suspect]
     Active Substance: FENTANYL
     Indication: Product used for unknown indication
     Route: 065

REACTIONS (10)
  - Accidental exposure to product by child [Unknown]
  - Hyperglycaemia [Recovering/Resolving]
  - Hypoventilation [Recovering/Resolving]
  - Posterior reversible encephalopathy syndrome [Recovering/Resolving]
  - Hypothermia [Recovering/Resolving]
  - Hypoxia [Recovering/Resolving]
  - Metabolic acidosis [Recovering/Resolving]
  - Toxicity to various agents [Unknown]
  - Acute respiratory failure [Recovering/Resolving]
  - Mental status changes [Recovering/Resolving]
